FAERS Safety Report 5049200-0 (Version None)
Quarter: 2006Q3

REPORT INFORMATION
  Report Type: 
  Country: None (occurrence: None)
  Receive Date: 20060706
  Receipt Date: 20060623
  Transmission Date: 20061208
  Serious: Yes (Death, Hospitalization)
  Sender: FDA-Public Use
  Company Number: 2006061589

PATIENT
  Age: 19 Year
  Sex: Female
  Weight: 37.4 kg

DRUGS (4)
  1. SUTENT [Suspect]
     Indication: RENAL CELL CARCINOMA STAGE UNSPECIFIED
     Dosage: 50 MG (50 MG, CYCLIC), ORAL
     Route: 048
     Dates: start: 20060114
  2. DEXAMETHASONE TAB [Concomitant]
  3. LYRICA [Concomitant]
  4. FENTANYL TRANSDERMAL SYSTEM [Concomitant]

REACTIONS (18)
  - ALOPECIA [None]
  - BLOOD ALBUMIN DECREASED [None]
  - BLOOD BICARBONATE DECREASED [None]
  - BLOOD CALCIUM DECREASED [None]
  - BLOOD SODIUM DECREASED [None]
  - FATIGUE [None]
  - HAEMATOCRIT DECREASED [None]
  - HAEMOGLOBIN DECREASED [None]
  - LOWER RESPIRATORY TRACT INFECTION [None]
  - NAUSEA [None]
  - NEUTROPENIA [None]
  - PLATELET COUNT DECREASED [None]
  - PLEURAL EFFUSION [None]
  - PSEUDOMONAS INFECTION [None]
  - RED BLOOD CELL COUNT DECREASED [None]
  - STAPHYLOCOCCAL INFECTION [None]
  - VOMITING [None]
  - WOUND INFECTION [None]
